FAERS Safety Report 25907448 (Version 2)
Quarter: 2025Q4

REPORT INFORMATION
  Report Type: Spontaneous
  Country: JP (occurrence: JP)
  Receive Date: 20251010
  Receipt Date: 20251106
  Transmission Date: 20260118
  Serious: Yes (Other)
  Sender: TERSERA THERAPEUTICS
  Company Number: JP-AstraZeneca-CH-00962514A

PATIENT

DRUGS (3)
  1. GOSERELIN [Suspect]
     Active Substance: GOSERELIN
     Indication: Prostate cancer
     Dosage: UNK
     Route: 058
  2. ZOLADEX [Suspect]
     Active Substance: GOSERELIN ACETATE
     Indication: Prostate cancer
     Dosage: UNK
     Route: 065
  3. LYNPARZA [Suspect]
     Active Substance: OLAPARIB
     Indication: Prostate cancer
     Dosage: 300 MILLIGRAM, BID
     Route: 048
     Dates: start: 2023, end: 2023

REACTIONS (4)
  - Myelosuppression [Unknown]
  - Prostatic specific antigen increased [Unknown]
  - Osteosclerosis [Unknown]
  - Malaise [Unknown]

NARRATIVE: CASE EVENT DATE: 20230101
